FAERS Safety Report 14376128 (Version 2)
Quarter: 2018Q1

REPORT INFORMATION
  Report Type: Report from Study
  Country: US (occurrence: US)
  Receive Date: 20180111
  Receipt Date: 20180119
  Transmission Date: 20180509
  Serious: No
  Sender: FDA-Public Use
  Company Number: US-009507513-1712USA014553

PATIENT
  Sex: Female

DRUGS (10)
  1. METFORMIN [Concomitant]
     Active Substance: METFORMIN HYDROCHLORIDE
     Dosage: 1 TABLET IN THE AM
  2. VITAMIN D [Concomitant]
     Active Substance: CHOLECALCIFEROL
     Dosage: 4000 UNITS DAILY
  3. EZETIMIBE. [Concomitant]
     Active Substance: EZETIMIBE
     Route: 048
  4. NIACIN. [Concomitant]
     Active Substance: NIACIN
  5. JANUVIA [Suspect]
     Active Substance: SITAGLIPTIN PHOSPHATE
     Indication: DIABETES MELLITUS
     Dosage: 1 TABLET DAILY
     Route: 048
     Dates: start: 201707
  6. XANAX [Concomitant]
     Active Substance: ALPRAZOLAM
     Dosage: 1 TABLET IN THE AM AND ONE IN THE PM
     Route: 048
  7. PREVACID [Concomitant]
     Active Substance: LANSOPRAZOLE
  8. GLIPIZIDE. [Concomitant]
     Active Substance: GLIPIZIDE
     Dosage: 2 TABLETS, TWO IN THE AM AND TWO IN THE PM
     Route: 048
  9. CINNAMON. [Concomitant]
     Active Substance: CINNAMON
     Indication: BLOOD GLUCOSE INCREASED
  10. OMEGA-3 MARINE TRIGLYCERIDES [Concomitant]
     Active Substance: FISH OIL

REACTIONS (4)
  - Blood glucose increased [Unknown]
  - Blood glucose fluctuation [Unknown]
  - Glycosylated haemoglobin increased [Unknown]
  - Drug dose omission [Unknown]

NARRATIVE: CASE EVENT DATE: 2017
